FAERS Safety Report 13695992 (Version 2)
Quarter: 2017Q3

REPORT INFORMATION
  Report Type: Report from Study
  Country: BE (occurrence: BE)
  Receive Date: 20170628
  Receipt Date: 20170712
  Transmission Date: 20171127
  Serious: Yes (Hospitalization)
  Sender: FDA-Public Use
  Company Number: BE-ASTRAZENECA-2017SE65673

PATIENT
  Age: 18713 Day
  Sex: Female

DRUGS (1)
  1. OLAPARIB. [Suspect]
     Active Substance: OLAPARIB
     Indication: OVARIAN CANCER
     Route: 048

REACTIONS (1)
  - Ileus paralytic [Recovered/Resolved]

NARRATIVE: CASE EVENT DATE: 20170621
